FAERS Safety Report 5952544-9 (Version None)
Quarter: 2008Q4

REPORT INFORMATION
  Report Type: 
  Country: None (occurrence: None)
  Receive Date: 20081023
  Receipt Date: 20080410
  Transmission Date: 20090506
  Serious: Yes (Life-Threatening, Other)
  Sender: FDA-Public Use
  Company Number: 47153

PATIENT
  Sex: Male
  Weight: 63.9572 kg

DRUGS (2)
  1. LEUCOVORIN CALCIUM [Suspect]
     Indication: RECTAL CANCER
  2. . [Concomitant]

REACTIONS (2)
  - INFECTION [None]
  - PYREXIA [None]
